FAERS Safety Report 17365099 (Version 1)
Quarter: 2020Q1

REPORT INFORMATION
  Report Type: Spontaneous
  Country: GB (occurrence: GB)
  Receive Date: 20200204
  Receipt Date: 20200204
  Transmission Date: 20200409
  Serious: Yes (Other)
  Sender: FDA-Public Use
  Company Number: GB-AUROBINDO-AUR-APL-2020-004905

PATIENT
  Age: 36 Year
  Sex: Female
  Weight: 65.8 kg

DRUGS (2)
  1. AMOXICILLIN CAPSULE [Suspect]
     Active Substance: AMOXICILLIN
     Indication: PRODUCT USED FOR UNKNOWN INDICATION
     Dosage: 500 MILLIGRAM
     Route: 065
  2. DICLOFENAC SODIUM. [Concomitant]
     Active Substance: DICLOFENAC SODIUM
     Indication: PRODUCT USED FOR UNKNOWN INDICATION
     Dosage: 150 MILLIGRAM, ONCE A DAY
     Route: 065
     Dates: start: 20191219

REACTIONS (4)
  - Osteoarthritis [Recovering/Resolving]
  - Tremor [Unknown]
  - Joint stiffness [Recovering/Resolving]
  - Malaise [Unknown]

NARRATIVE: CASE EVENT DATE: 20191219
